FAERS Safety Report 19141827 (Version 1)
Quarter: 2021Q2

REPORT INFORMATION
  Report Type: Report from Study
  Country: US (occurrence: US)
  Receive Date: 20210415
  Receipt Date: 20210415
  Transmission Date: 20210717
  Serious: Yes (Other)
  Sender: FDA-Public Use
  Company Number: US-GLAXOSMITHKLINE-US2020248559

PATIENT
  Age: 61 Year
  Sex: Male

DRUGS (1)
  1. BELANTAMAB MAFODOTIN. [Suspect]
     Active Substance: BELANTAMAB MAFODOTIN
     Indication: PLASMA CELL MYELOMA
     Dosage: UNK
     Dates: start: 20201125

REACTIONS (11)
  - Tooth socket haemorrhage [Unknown]
  - Keratopathy [Unknown]
  - Dizziness [Unknown]
  - Visual acuity reduced [Unknown]
  - Plasma cell myeloma [Unknown]
  - Dyspnoea exertional [Unknown]
  - Condition aggravated [Unknown]
  - Loose tooth [Unknown]
  - Dry eye [Unknown]
  - Lacrimation increased [Unknown]
  - Vision blurred [Unknown]

NARRATIVE: CASE EVENT DATE: 20201125
